FAERS Safety Report 7519294-9 (Version None)
Quarter: 2011Q2

REPORT INFORMATION
  Report Type: 
  Country: None (occurrence: None)
  Receive Date: 20110523
  Receipt Date: 20110510
  Transmission Date: 20111010
  Serious: Yes (Other)
  Sender: FDA-Public Use
  Company Number: B0720149A

PATIENT
  Age: 60 Year
  Sex: Male

DRUGS (1)
  1. BEXXAR [Suspect]
     Indication: B-CELL LYMPHOMA

REACTIONS (7)
  - HYPOTENSION [None]
  - ANAPHYLACTIC REACTION [None]
  - HYPOXIA [None]
  - MUSCULAR WEAKNESS [None]
  - QUADRIPARESIS [None]
  - AREFLEXIA [None]
  - AXONAL NEUROPATHY [None]
